FAERS Safety Report 21673247 (Version 2)
Quarter: 2022Q4

REPORT INFORMATION
  Report Type: Spontaneous
  Country: US (occurrence: US)
  Receive Date: 20221202
  Receipt Date: 20221216
  Transmission Date: 20230112
  Serious: No
  Sender: FDA-Public Use
  Company Number: US-IDORSIA-002224-2022-US

PATIENT
  Sex: Female

DRUGS (2)
  1. QUVIVIQ [Suspect]
     Active Substance: DARIDOREXANT
     Indication: Insomnia
     Dosage: 25 MG QD
     Route: 048
     Dates: start: 20221107, end: 20221112
  2. QUVIVIQ [Suspect]
     Active Substance: DARIDOREXANT
     Dosage: 50 MG, (TWO 25 MG TABLETS) QD
     Route: 048
     Dates: start: 20221112, end: 20221201

REACTIONS (1)
  - Drug ineffective [Recovered/Resolved]
